FAERS Safety Report 22161350 (Version 2)
Quarter: 2023Q2

REPORT INFORMATION
  Report Type: Spontaneous
  Country: US (occurrence: US)
  Receive Date: 20230331
  Receipt Date: 20230522
  Transmission Date: 20230721
  Serious: No
  Sender: FDA-Public Use
  Company Number: US-Stemline Therapeutics, Inc.-2023ST000267

PATIENT
  Age: 62 Year
  Sex: Female

DRUGS (1)
  1. ORSERDU [Suspect]
     Active Substance: ELACESTRANT
     Indication: Product used for unknown indication
     Dosage: 345 MG, ONCE A DAY
     Route: 048
     Dates: start: 20230312

REACTIONS (13)
  - Epigastric discomfort [Unknown]
  - Heart rate increased [Unknown]
  - Blood pressure increased [Unknown]
  - Malaise [Unknown]
  - Photophobia [Unknown]
  - Palpitations [Unknown]
  - Night sweats [Unknown]
  - Drug hypersensitivity [Unknown]
  - Asthenia [Unknown]
  - Insomnia [Not Recovered/Not Resolved]
  - Fatigue [Unknown]
  - Dizziness [Unknown]
  - Liver function test increased [Unknown]
